FAERS Safety Report 11076812 (Version 12)
Quarter: 2019Q2

REPORT INFORMATION
  Report Type: Report from Study
  Country: CA (occurrence: CA)
  Receive Date: 20150429
  Receipt Date: 20190619
  Transmission Date: 20190711
  Serious: Yes (Hospitalization, Other)
  Sender: FDA-Public Use
  Company Number: PHHY2013CA007723

PATIENT
  Age: 66 Year
  Sex: Male

DRUGS (7)
  1. BUPROPION. [Concomitant]
     Active Substance: BUPROPION
     Indication: EMOTIONAL DISORDER
     Route: 065
  2. CANDESARTAN HCT [Concomitant]
     Active Substance: CANDESARTAN CILEXETIL\HYDROCHLOROTHIAZIDE
     Indication: PRODUCT USED FOR UNKNOWN INDICATION
     Route: 065
  3. SANDOSTATIN LAR DEPOT [Suspect]
     Active Substance: OCTREOTIDE ACETATE
     Dosage: 10 MG, QMO (EVERY 4 WEEKS)
     Route: 030
     Dates: start: 20120712
  4. HYDROCHLOROTHIAZIDE. [Concomitant]
     Active Substance: HYDROCHLOROTHIAZIDE
     Indication: PRODUCT USED FOR UNKNOWN INDICATION
     Dosage: 25 MG, QD
     Route: 065
  5. RAMIPRIL. [Suspect]
     Active Substance: RAMIPRIL
     Indication: MYOCARDIAL INFARCTION
     Dosage: 25 MG, BID
     Route: 065
  6. SANDOSTATIN LAR DEPOT [Suspect]
     Active Substance: OCTREOTIDE ACETATE
     Indication: NEUROENDOCRINE TUMOUR
     Dosage: 10 MG, QMO (EVERY 4 WEEKS)
     Route: 030
     Dates: start: 20051215
  7. RAMIPRIL. [Suspect]
     Active Substance: RAMIPRIL
     Dosage: 20 MG, QD
     Route: 065

REACTIONS (20)
  - Arterial occlusive disease [Unknown]
  - Urinary tract infection [Unknown]
  - Muscle spasms [Unknown]
  - Chest pain [Unknown]
  - Renal impairment [Unknown]
  - Vomiting [Unknown]
  - Heart rate decreased [Unknown]
  - Injection site pain [Unknown]
  - Myocardial infarction [Recovering/Resolving]
  - Nausea [Unknown]
  - Fatigue [Unknown]
  - Blood potassium decreased [Unknown]
  - Ejection fraction decreased [Unknown]
  - Blood pressure increased [Unknown]
  - Chills [Unknown]
  - Abdominal lymphadenopathy [Unknown]
  - Pyrexia [Unknown]
  - Visual impairment [Unknown]
  - Heart rate increased [Unknown]
  - Influenza [Unknown]

NARRATIVE: CASE EVENT DATE: 20130122
